FAERS Safety Report 5762179-9 (Version None)
Quarter: 2008Q2

REPORT INFORMATION
  Report Type: 
  Country: None (occurrence: None)
  Receive Date: 20080604
  Receipt Date: 20080528
  Transmission Date: 20081010
  Serious: Yes (Other)
  Sender: FDA-Public Use
  Company Number: 163-20785-08030807

PATIENT
  Age: 72 Year
  Sex: Male

DRUGS (4)
  1. THALOMID [Suspect]
     Indication: MULTIPLE MYELOMA
     Dosage: OD, ORAL; 50-100MG, DAILY, ORAL; 200-250MG, DAILY, ORAL
     Route: 048
     Dates: start: 20010802, end: 20051101
  2. THALOMID [Suspect]
     Indication: MULTIPLE MYELOMA
     Dosage: OD, ORAL; 50-100MG, DAILY, ORAL; 200-250MG, DAILY, ORAL
     Route: 048
     Dates: start: 20071128, end: 20080201
  3. THALOMID [Suspect]
     Indication: MULTIPLE MYELOMA
     Dosage: OD, ORAL; 50-100MG, DAILY, ORAL; 200-250MG, DAILY, ORAL
     Route: 048
     Dates: start: 20080212, end: 20080301
  4. DEXAMETHASONE TAB [Concomitant]

REACTIONS (3)
  - DISEASE PROGRESSION [None]
  - NO THERAPEUTIC RESPONSE [None]
  - PATHOLOGICAL FRACTURE [None]
